FAERS Safety Report 9695353 (Version 2)
Quarter: 2013Q4

REPORT INFORMATION
  Report Type: Report from Study
  Country: CZ (occurrence: CZ)
  Receive Date: 20131119
  Receipt Date: 20131213
  Transmission Date: 20140711
  Serious: Yes (Other)
  Sender: FDA-Public Use
  Company Number: CZ-ROCHE-1301578

PATIENT
  Age: 46 Year
  Sex: Female

DRUGS (2)
  1. HERCEPTIN [Suspect]
     Indication: BREAST CANCER
     Route: 065
     Dates: start: 20091105, end: 20100915
  2. TAMOXIFEN [Suspect]
     Indication: BREAST CANCER
     Route: 065
     Dates: start: 20100915

REACTIONS (3)
  - Pericardial effusion [Recovered/Resolved]
  - Ejection fraction decreased [Recovering/Resolving]
  - Cardiac aneurysm [Recovering/Resolving]
